FAERS Safety Report 6604772-7 (Version None)
Quarter: 2010Q1

REPORT INFORMATION
  Report Type: 
  Country: None (occurrence: None)
  Receive Date: 20100226
  Receipt Date: 20100105
  Transmission Date: 20100710
  Serious: No
  Sender: FDA-Public Use
  Company Number: US-BRISTOL-MYERS SQUIBB COMPANY-14926687

PATIENT
  Age: 71 Year
  Sex: Female

DRUGS (13)
  1. ONGLYZA [Suspect]
  2. OXYCONTIN [Concomitant]
  3. SYNTHROID [Concomitant]
  4. PRAVACHOL [Concomitant]
  5. NEURONTIN [Concomitant]
  6. ALTACE [Concomitant]
  7. EFFEXOR [Concomitant]
  8. NORVASC [Concomitant]
  9. NEXIUM [Concomitant]
  10. ASPIRIN [Concomitant]
  11. AMITIZA [Concomitant]
  12. VITAMIN D [Concomitant]
  13. CALCITRIOL [Concomitant]

REACTIONS (1)
  - URTICARIA [None]
